FAERS Safety Report 8286581-9 (Version None)
Quarter: 2012Q2

REPORT INFORMATION
  Report Type: 
  Country: None (occurrence: None)
  Receive Date: 20120416
  Receipt Date: 20120403
  Transmission Date: 20120825
  Serious: Yes (Other)
  Sender: FDA-Public Use
  Company Number: US-SANOFI-AVENTIS-2012SA023491

PATIENT
  Sex: Male

DRUGS (3)
  1. LANTUS [Suspect]
     Dosage: DOSE:320 UNIT(S)
     Route: 058
  2. LANTUS [Suspect]
     Route: 058
  3. NOVOLOG MIX 70/30 [Suspect]
     Route: 065

REACTIONS (4)
  - PAIN [None]
  - OVERDOSE [None]
  - SLEEP DISORDER [None]
  - OSTEOARTHRITIS [None]
